FAERS Safety Report 9442022 (Version 1)
Quarter: 2013Q3

REPORT INFORMATION
  Report Type: Spontaneous
  Country: US (occurrence: US)
  Receive Date: 20130806
  Receipt Date: 20130806
  Transmission Date: 20140515
  Serious: No
  Sender: FDA-Public Use
  Company Number: US-PFIZER INC-2013224429

PATIENT
  Age: 69 Year
  Sex: Female
  Weight: 39.46 kg

DRUGS (7)
  1. GENOTROPIN MINIQUICK [Suspect]
     Indication: HYPOPITUITARISM
     Dosage: 0.6 MG, UNK
  2. SYNTHROID [Concomitant]
     Dosage: UNK
  3. PREMPRO [Concomitant]
     Dosage: UNK
  4. VITAMIN A [Concomitant]
     Dosage: UNK
  5. VITAMIN C [Concomitant]
     Dosage: UNK
  6. CALCIUM [Concomitant]
     Dosage: 1200 MG, 1X/DAY
  7. VITAMIN E [Concomitant]

REACTIONS (3)
  - Blood sodium decreased [Unknown]
  - Oedema [Unknown]
  - Blood growth hormone abnormal [Unknown]
